FAERS Safety Report 6004668-8 (Version None)
Quarter: 2008Q4

REPORT INFORMATION
  Report Type: 
  Country: None (occurrence: None)
  Receive Date: 20081216
  Receipt Date: 20081212
  Transmission Date: 20090506
  Serious: Yes (Death)
  Sender: FDA-Public Use
  Company Number: JP-EISAI MEDICAL RESEARCH-E2020-03822-SPO-JP

PATIENT
  Age: 75 Year
  Sex: Female

DRUGS (1)
  1. ARICEPT [Suspect]
     Indication: DEMENTIA ALZHEIMER'S TYPE
     Route: 048
     Dates: start: 20080513, end: 20080525

REACTIONS (1)
  - THROMBOTIC THROMBOCYTOPENIC PURPURA [None]
